FAERS Safety Report 9974428 (Version 1)
Quarter: 2014Q1

REPORT INFORMATION
  Report Type: Report from Study
  Country: US (occurrence: US)
  Receive Date: 20140306
  Receipt Date: 20140306
  Transmission Date: 20141002
  Serious: No
  Sender: FDA-Public Use
  Company Number: US-ABBVIE-13P-163-1159064-00

PATIENT
  Age: 41 Year
  Sex: Female
  Weight: 86.26 kg

DRUGS (16)
  1. HUMIRA [Suspect]
     Indication: CROHN^S DISEASE
     Dosage: LOADING DOSE
     Dates: start: 20131009, end: 20131009
  2. XANAX [Concomitant]
     Indication: ANXIETY
  3. EFFEXOR [Concomitant]
     Indication: ANXIETY
  4. PROTONIX [Concomitant]
     Indication: GASTRIC ULCER
  5. PROTONIX [Concomitant]
     Indication: OESOPHAGEAL ULCER
  6. PEPCID [Concomitant]
     Indication: GASTRIC ULCER
  7. PEPCID [Concomitant]
     Indication: OESOPHAGEAL ULCER
  8. REGLAN [Concomitant]
     Indication: IMPAIRED GASTRIC EMPTYING
  9. SULFAZINE [Concomitant]
     Indication: CROHN^S DISEASE
  10. METOPROLOL [Concomitant]
     Indication: HYPERTENSION
  11. HYDROCHLOROTHIAZIDE [Concomitant]
     Indication: HYPERTENSION
  12. FLAGYL [Concomitant]
     Indication: CROHN^S DISEASE
  13. VICODIN [Concomitant]
     Indication: ARTHRALGIA
  14. SINGULAIR [Concomitant]
     Indication: ASTHMA
  15. ALBUTEROL HFA [Concomitant]
     Indication: ASTHMA
     Route: 055
  16. MULTIVITAMIN [Concomitant]
     Indication: VITAMIN SUPPLEMENTATION

REACTIONS (3)
  - Therapeutic response unexpected [Unknown]
  - Fistula [Recovering/Resolving]
  - Injection site pain [Recovered/Resolved]
